FAERS Safety Report 7292805-7 (Version None)
Quarter: 2011Q1

REPORT INFORMATION
  Report Type: 
  Country: None (occurrence: None)
  Receive Date: 20110215
  Receipt Date: 20110202
  Transmission Date: 20110831
  Serious: Yes (Hospitalization)
  Sender: FDA-Public Use
  Company Number: US-ELI_LILLY_AND_COMPANY-US201011004365

PATIENT
  Sex: Female
  Weight: 90.703 kg

DRUGS (16)
  1. LANTUS [Concomitant]
  2. LEVOTHYROXINE SODIUM [Concomitant]
  3. ASPIRIN [Concomitant]
  4. CALCIUM WITH VITAMIN D [Concomitant]
  5. SPIRIVA [Concomitant]
  6. CITALOPRAM [Concomitant]
  7. CHOLESTYRAMINE [Concomitant]
  8. FUROSEMIDE [Concomitant]
  9. HYDRALAZINE [Concomitant]
  10. PREDNISONE [Concomitant]
  11. ANTIBIOTICS [Concomitant]
  12. FLOVENT [Concomitant]
  13. FORTEO [Suspect]
     Indication: OSTEOPOROSIS
     Dosage: 20 UG, DAILY (1/D)
  14. GABAPENTIN [Concomitant]
  15. NOVOLOG [Concomitant]
  16. MULTIVITAMIN [Concomitant]

REACTIONS (4)
  - FEELING ABNORMAL [None]
  - PNEUMONIA [None]
  - ANAEMIA [None]
  - BRONCHITIS [None]
